FAERS Safety Report 17492787 (Version 4)
Quarter: 2020Q2

REPORT INFORMATION
  Report Type: Report from Study
  Country: AU (occurrence: AU)
  Receive Date: 20200303
  Receipt Date: 20200401
  Transmission Date: 20200713
  Serious: Yes (Other)
  Sender: FDA-Public Use
  Company Number: AU-PFIZER INC-2019053959

PATIENT
  Age: 48 Year
  Sex: Male
  Weight: 60 kg

DRUGS (23)
  1. FABRAZYME [Suspect]
     Active Substance: AGALSIDASE BETA
     Dosage: 1.03 MG/KG, CYCLIC (60 MG, QOW, 60ML/HR FOR 2 HOURS)
     Route: 041
  2. FABRAZYME [Suspect]
     Active Substance: AGALSIDASE BETA
     Dosage: 60 MG, CYCLIC (60 MG, QOW, 60ML/HR FOR 2 HOURS)
  3. FABRAZYME [Suspect]
     Active Substance: AGALSIDASE BETA
     Dosage: 60 MG, CYCLIC (60 MG, QOW, 60ML/HR FOR 2 HOURS)
     Route: 041
  4. FABRAZYME [Suspect]
     Active Substance: AGALSIDASE BETA
     Dosage: 60 MG, QOW, INFUSION IN HOME SETTING
     Route: 041
  5. FABRAZYME [Suspect]
     Active Substance: AGALSIDASE BETA
     Dosage: 60 MG, CYCLIC (60 MG, QOW, 60ML/HR FOR 2 HOURS)
  6. FABRAZYME [Suspect]
     Active Substance: AGALSIDASE BETA
     Indication: FABRY^S DISEASE
     Dosage: ; 60 MG, QOW, 60ML/HR FOR 2 HOURS
     Route: 041
     Dates: start: 20080923
  7. FABRAZYME [Suspect]
     Active Substance: AGALSIDASE BETA
     Dosage: 1.03 MG/KG, CYCLIC (60 MG, QOW, 60ML/HR FOR 2 HOURS)
     Route: 041
  8. FABRAZYME [Suspect]
     Active Substance: AGALSIDASE BETA
     Dosage: 60 MG, QOW, INFUSION IN HOME SETTING
     Route: 041
  9. FABRAZYME [Suspect]
     Active Substance: AGALSIDASE BETA
     Dosage: 60 MG, QOW, INFUSION IN HOME SETTING
     Route: 041
  10. FABRAZYME [Suspect]
     Active Substance: AGALSIDASE BETA
     Dosage: 60 MG, CYCLIC (60 MG, QOW, 60ML/HR FOR 2 HOURS)
  11. FABRAZYME [Suspect]
     Active Substance: AGALSIDASE BETA
     Dosage: 1.03 MG/KG, CYCLIC (60 MG, QOW, 60ML/HR FOR 2 HOURS)
     Route: 041
  12. FABRAZYME [Suspect]
     Active Substance: AGALSIDASE BETA
     Dosage: 60 MG, CYCLIC (60 MG, QOW, 60ML/HR FOR 2 HOURS)
     Route: 041
  13. FABRAZYME [Suspect]
     Active Substance: AGALSIDASE BETA
     Dosage: 60 MG, CYCLIC (60 MG, QOW, 60ML/HR FOR 2 HOURS)
     Route: 041
  14. FABRAZYME [Suspect]
     Active Substance: AGALSIDASE BETA
     Dosage: 60 MG, QOW, INFUSION IN HOME SETTING
     Route: 041
     Dates: start: 20180424
  15. FABRAZYME [Suspect]
     Active Substance: AGALSIDASE BETA
     Dosage: 60 MG, QOW, INFUSION IN HOME SETTING
     Route: 041
  16. FABRAZYME [Suspect]
     Active Substance: AGALSIDASE BETA
     Dosage: 1.03 MG/KG, CYCLIC (60 MG, QOW, 60ML/HR FOR 2 HOURS)
     Route: 041
  17. FABRAZYME [Suspect]
     Active Substance: AGALSIDASE BETA
     Dosage: 1.03 MG/KG, CYCLIC (60 MG, QOW, 60ML/HR FOR 2 HOURS)
     Route: 041
  18. FABRAZYME [Suspect]
     Active Substance: AGALSIDASE BETA
     Dosage: 60 MG, CYCLIC (60 MG, QOW, 60ML/HR FOR 2 HOURS)
     Route: 041
  19. FABRAZYME [Suspect]
     Active Substance: AGALSIDASE BETA
     Dosage: 60 MG, CYCLIC (60 MG, QOW, 60ML/HR FOR 2 HOURS)
     Route: 041
  20. RAMIPRIL. [Suspect]
     Active Substance: RAMIPRIL
     Dosage: UNK UNK, UNK
     Route: 065
  21. FABRAZYME [Suspect]
     Active Substance: AGALSIDASE BETA
     Dosage: 60 MG, QOW, INFUSION IN HOME SETTING
     Route: 041
  22. FABRAZYME [Suspect]
     Active Substance: AGALSIDASE BETA
     Dosage: 60 MG, CYCLIC (60 MG, QOW, 60ML/HR FOR 2 HOURS)
  23. CANDESARTAN. [Concomitant]
     Active Substance: CANDESARTAN
     Dosage: UNK, UNK
     Route: 065
     Dates: start: 20190119

REACTIONS (13)
  - Feeling abnormal [Not Recovered/Not Resolved]
  - Cough [Recovering/Resolving]
  - Nerve compression [Not Recovered/Not Resolved]
  - Swelling face [Recovering/Resolving]
  - Pain in extremity [Not Recovered/Not Resolved]
  - Respiratory tract irritation [Unknown]
  - Pain [Recovering/Resolving]
  - Influenza [Recovered/Resolved]
  - Malaise [Not Recovered/Not Resolved]
  - Peripheral swelling [Not Recovered/Not Resolved]
  - Joint swelling [Recovering/Resolving]
  - Bradycardia [Unknown]
  - Heart rate decreased [Not Recovered/Not Resolved]

NARRATIVE: CASE EVENT DATE: 20180719
